FAERS Safety Report 11440484 (Version 2)
Quarter: 2015Q3

REPORT INFORMATION
  Report Type: Report from Study
  Country: AR (occurrence: AR)
  Receive Date: 20150901
  Receipt Date: 20150901
  Transmission Date: 20151125
  Serious: Yes (Death)
  Sender: FDA-Public Use
  Company Number: PHHY2015AR104091

PATIENT
  Sex: Male

DRUGS (2)
  1. RASILEZ [Suspect]
     Active Substance: ALISKIREN
     Indication: CARDIAC DISORDER
     Route: 065
  2. DIOVAN [Suspect]
     Active Substance: VALSARTAN
     Indication: CARDIAC DISORDER
     Dosage: 160 (UNITS NOT REPORTED), UNK
     Route: 065

REACTIONS (3)
  - Cardiac disorder [Fatal]
  - Cerebrovascular accident [Fatal]
  - Off label use [Unknown]
